FAERS Safety Report 13399272 (Version 1)
Quarter: 2017Q2

REPORT INFORMATION
  Report Type: Other
  Country: GB (occurrence: GB)
  Receive Date: 20170404
  Receipt Date: 20170404
  Transmission Date: 20170830
  Serious: Yes (Hospitalization)
  Sender: FDA-Public Use
  Company Number: GB-LUPIN PHARMACEUTICALS INC.-E2B_00005453

PATIENT
  Age: 30 Year
  Sex: Female
  Weight: 64 kg

DRUGS (2)
  1. SERTRALINE [Suspect]
     Active Substance: SERTRALINE HYDROCHLORIDE
     Indication: DEPRESSION
     Dosage: 50 MG,UNK,UNKNOWN
     Route: 048
     Dates: start: 2013, end: 2016
  2. SERTRALINE [Suspect]
     Active Substance: SERTRALINE HYDROCHLORIDE
     Dosage: 100 MG,UNK,UNKNOWN
     Route: 048
     Dates: start: 2016, end: 20160427

REACTIONS (4)
  - Discomfort [Unknown]
  - Back pain [Unknown]
  - Abdominal pain [Unknown]
  - Pancreatitis acute [Recovering/Resolving]

NARRATIVE: CASE EVENT DATE: 2013
